FAERS Safety Report 18446039 (Version 3)
Quarter: 2024Q1

REPORT INFORMATION
  Report Type: Report from Study
  Country: JP (occurrence: JP)
  Receive Date: 20201030
  Receipt Date: 20240124
  Transmission Date: 20240409
  Serious: Yes (Hospitalization, Other)
  Sender: FDA-Public Use
  Company Number: JP-JNJFOC-20181225544

PATIENT
  Age: 39 Year
  Sex: Male

DRUGS (50)
  1. DARUNAVIR [Suspect]
     Active Substance: DARUNAVIR
     Indication: HIV infection
     Route: 048
     Dates: start: 20091203, end: 20150708
  2. INTELENCE [Suspect]
     Active Substance: ETRAVIRINE
     Indication: HIV infection
     Route: 048
     Dates: start: 20100921, end: 20110714
  3. EDURANT [Suspect]
     Active Substance: RILPIVIRINE HYDROCHLORIDE
     Indication: HIV infection
     Route: 048
     Dates: start: 20150709, end: 20190220
  4. EDURANT [Suspect]
     Active Substance: RILPIVIRINE HYDROCHLORIDE
     Route: 048
     Dates: start: 20230119, end: 20230226
  5. NORVIR [Suspect]
     Active Substance: RITONAVIR
     Indication: HIV infection
     Route: 048
     Dates: start: 20091022, end: 20110615
  6. EPZICOM [Suspect]
     Active Substance: ABACAVIR SULFATE\LAMIVUDINE
     Indication: HIV infection
     Route: 048
     Dates: start: 20091211, end: 20100920
  7. TRUVADA [Suspect]
     Active Substance: EMTRICITABINE\TENOFOVIR DISOPROXIL FUMARATE
     Indication: HIV infection
     Route: 048
     Dates: start: 20091022, end: 20091202
  8. REYATAZ [Suspect]
     Active Substance: ATAZANAVIR SULFATE
     Indication: HIV infection
     Route: 048
     Dates: start: 20091022, end: 20091202
  9. TIVICAY [Suspect]
     Active Substance: DOLUTEGRAVIR SODIUM
     Indication: HIV infection
     Route: 048
     Dates: start: 20150709, end: 20190220
  10. NORVIR [Concomitant]
     Active Substance: RITONAVIR
     Indication: HIV infection
     Route: 048
     Dates: start: 20110616, end: 20150708
  11. ISENTRESS [Concomitant]
     Active Substance: RALTEGRAVIR POTASSIUM
     Indication: HIV infection
     Route: 048
     Dates: start: 20100921, end: 20150708
  12. JULUCA [Concomitant]
     Active Substance: DOLUTEGRAVIR SODIUM\RILPIVIRINE HYDROCHLORIDE
     Indication: HIV infection
     Route: 048
     Dates: start: 20190221, end: 20220119
  13. JULUCA [Concomitant]
     Active Substance: DOLUTEGRAVIR SODIUM\RILPIVIRINE HYDROCHLORIDE
     Route: 048
     Dates: start: 20220428, end: 20230118
  14. DOVATO [Concomitant]
     Active Substance: DOLUTEGRAVIR SODIUM\LAMIVUDINE
     Indication: HIV infection
     Route: 048
     Dates: start: 20220120, end: 20220427
  15. VOCABRIA [Concomitant]
     Active Substance: CABOTEGRAVIR SODIUM
     Indication: HIV infection
     Route: 048
     Dates: start: 20230119, end: 20230216
  16. VOCABRIA [Concomitant]
     Active Substance: CABOTEGRAVIR SODIUM
     Route: 030
     Dates: start: 20230216
  17. RILPIVIRINE [Concomitant]
     Active Substance: RILPIVIRINE
     Indication: HIV infection
     Route: 030
     Dates: start: 20230216
  18. RISPERDAL [Concomitant]
     Active Substance: RISPERIDONE
     Indication: Depression
     Dosage: P.R.N
     Route: 048
     Dates: start: 20140501, end: 20160818
  19. RISPERDAL [Concomitant]
     Active Substance: RISPERIDONE
     Dosage: DOSE UNKNOWN
     Route: 048
     Dates: start: 20190401, end: 20200517
  20. RISPERDAL [Concomitant]
     Active Substance: RISPERIDONE
     Dosage: DOSE UNKNOWN
     Route: 048
     Dates: start: 20190401
  21. MYCOBUTIN [Concomitant]
     Active Substance: RIFABUTIN
     Indication: Mycobacterium avium complex infection
     Route: 048
     Dates: start: 20091120, end: 20091211
  22. VALGANCICLOVIR HYDROCHLORIDE [Concomitant]
     Active Substance: VALGANCICLOVIR HYDROCHLORIDE
     Indication: Cytomegalovirus infection
     Route: 048
     Dates: start: 20100106, end: 20100127
  23. VALGANCICLOVIR HYDROCHLORIDE [Concomitant]
     Active Substance: VALGANCICLOVIR HYDROCHLORIDE
     Indication: Mycobacterium avium complex infection
     Route: 048
     Dates: start: 20100216, end: 20100324
  24. VALGANCICLOVIR HYDROCHLORIDE [Concomitant]
     Active Substance: VALGANCICLOVIR HYDROCHLORIDE
     Indication: Cytomegalovirus chorioretinitis
     Route: 048
     Dates: start: 20100519, end: 20100630
  25. VALGANCICLOVIR HYDROCHLORIDE [Concomitant]
     Active Substance: VALGANCICLOVIR HYDROCHLORIDE
     Indication: Cytomegalovirus chorioretinitis
     Route: 048
     Dates: start: 20100701, end: 20110120
  26. GANCICLOVIR [Concomitant]
     Active Substance: GANCICLOVIR
     Indication: Cytomegalovirus chorioretinitis
     Route: 042
     Dates: start: 20100129, end: 20100215
  27. EBUTOL [Concomitant]
     Active Substance: ETHAMBUTOL HYDROCHLORIDE
     Indication: Disseminated mycobacterium avium complex infection
     Route: 048
     Dates: start: 20091120, end: 20100427
  28. CLARITHROMYCIN [Concomitant]
     Active Substance: CLARITHROMYCIN
     Indication: Disseminated mycobacterium avium complex infection
     Route: 048
     Dates: start: 20091120, end: 20110314
  29. LEVOFLOXACIN [Concomitant]
     Active Substance: LEVOFLOXACIN
     Indication: Disseminated mycobacterium avium complex infection
     Route: 065
     Dates: start: 20091120, end: 20091215
  30. LEVOFLOXACIN [Concomitant]
     Active Substance: LEVOFLOXACIN
     Indication: Pyelonephritis
     Route: 048
     Dates: start: 20130731, end: 20130811
  31. PENTAMIDINE [Concomitant]
     Active Substance: PENTAMIDINE
     Indication: Antifungal prophylaxis
     Route: 055
     Dates: start: 20101012, end: 20110616
  32. COIX LACRYMA-JOBI SEED EXTRACT [Concomitant]
     Indication: Skin papilloma
     Route: 048
     Dates: start: 20101214, end: 20140708
  33. MASKIN [Concomitant]
     Indication: Skin papilloma
     Dosage: Q.S.
     Route: 065
     Dates: start: 20101214, end: 20111019
  34. CLINDAMYCIN PHOSPHATE [Concomitant]
     Active Substance: CLINDAMYCIN PHOSPHATE
     Indication: Acne
     Dosage: Q.S.
     Route: 061
     Dates: start: 20101214, end: 20140708
  35. METHYLCOBALAMIN [Concomitant]
     Active Substance: METHYLCOBALAMIN
     Indication: Hypoaesthesia
     Route: 065
     Dates: start: 20101214, end: 20111220
  36. LYRICA [Concomitant]
     Active Substance: PREGABALIN
     Indication: Hypoaesthesia
     Route: 048
     Dates: start: 20111221
  37. NASONEX [Concomitant]
     Active Substance: MOMETASONE FUROATE
     Indication: Rhinitis allergic
     Dosage: 2 TIMES SPRAY PER DAY
     Route: 045
     Dates: start: 20110714
  38. ALESION [Concomitant]
     Active Substance: EPINASTINE HYDROCHLORIDE
     Indication: Rhinitis allergic
     Route: 065
     Dates: start: 20110714
  39. RIBOFLAVIN [Concomitant]
     Active Substance: RIBOFLAVIN
     Indication: Acne
     Route: 048
     Dates: start: 20130401, end: 20140708
  40. PYRIDOXAL [Concomitant]
     Active Substance: PYRIDOXAL
     Indication: Acne
     Route: 065
     Dates: start: 20130401, end: 20140708
  41. PICOLAMINE SALICYLATE [Concomitant]
     Active Substance: PICOLAMINE SALICYLATE
     Indication: Depression
     Route: 048
     Dates: start: 20140126, end: 20150623
  42. PICOLAMINE SALICYLATE [Concomitant]
     Active Substance: PICOLAMINE SALICYLATE
     Indication: Depression
     Route: 048
     Dates: start: 20150624
  43. PICOLAMINE SALICYLATE [Concomitant]
     Active Substance: PICOLAMINE SALICYLATE
     Indication: Depression
     Dosage: UNKNOWN
     Route: 048
     Dates: start: 20170401
  44. ZOLPIDEM TARTRATE [Concomitant]
     Active Substance: ZOLPIDEM TARTRATE
     Indication: Depression
     Dosage: P.R.N
     Route: 048
     Dates: start: 20150401, end: 20180331
  45. ZOLPIDEM TARTRATE [Concomitant]
     Active Substance: ZOLPIDEM TARTRATE
     Dosage: DOSE UNKNOWN
     Route: 048
     Dates: start: 20190401
  46. MICARDIS [Concomitant]
     Active Substance: TELMISARTAN
     Indication: Hypertension
     Route: 048
     Dates: start: 20160706
  47. LACTEC D [CALCIUM CHLORIDE DIHYDRATE;GLUCOSE;POTASSIUM CHLORIDE;SODIUM [Concomitant]
     Indication: Hepatitis A
     Dosage: UNKNOWN
     Route: 065
     Dates: start: 20180326, end: 20180330
  48. ELIETEN [METOCLOPRAMIDE] [Concomitant]
     Dosage: UNKNOWN
     Route: 065
     Dates: start: 20180326, end: 20180402
  49. LOXOPROFEN [Concomitant]
     Active Substance: LOXOPROFEN
     Dosage: UNKNOWN
     Route: 048
     Dates: start: 20180326, end: 20180402
  50. CALONAL [Concomitant]
     Active Substance: ACETAMINOPHEN
     Indication: Hepatitis A
     Dosage: UNKNOWN
     Route: 065
     Dates: start: 20180321, end: 20180326

REACTIONS (10)
  - Cytomegalovirus chorioretinitis [Recovering/Resolving]
  - Vitreous floaters [Recovered/Resolved]
  - Retinal detachment [Recovering/Resolving]
  - Hepatitis A [Recovered/Resolved]
  - Pyelonephritis [Recovered/Resolved]
  - Hypertension [Recovering/Resolving]
  - Hypoaesthesia [Recovering/Resolving]
  - Rhinitis allergic [Recovering/Resolving]
  - Depression [Recovering/Resolving]
  - Blood creatinine increased [Recovering/Resolving]

NARRATIVE: CASE EVENT DATE: 20090101
